FAERS Safety Report 23449068 (Version 1)
Quarter: 2024Q1

REPORT INFORMATION
  Report Type: Report from Study
  Country: JP (occurrence: JP)
  Receive Date: 20240128
  Receipt Date: 20240128
  Transmission Date: 20240409
  Serious: Yes (Other)
  Sender: FDA-Public Use
  Company Number: JP-GLAXOSMITHKLINE-JP2023JPN091831

PATIENT

DRUGS (68)
  1. MEPOLIZUMAB [Suspect]
     Active Substance: MEPOLIZUMAB
     Indication: Eosinophilic granulomatosis with polyangiitis
     Dosage: 100 MG
     Route: 058
     Dates: start: 20170214, end: 20170214
  2. MEPOLIZUMAB [Suspect]
     Active Substance: MEPOLIZUMAB
     Indication: Asthma
     Dosage: 100 MG
     Route: 058
     Dates: start: 20170314, end: 20170314
  3. MEPOLIZUMAB [Suspect]
     Active Substance: MEPOLIZUMAB
     Dosage: 100 MG
     Route: 058
     Dates: start: 20170411, end: 20170411
  4. MEPOLIZUMAB [Suspect]
     Active Substance: MEPOLIZUMAB
     Dosage: 100 MG
     Route: 058
     Dates: start: 20170509, end: 20170509
  5. MEPOLIZUMAB [Suspect]
     Active Substance: MEPOLIZUMAB
     Dosage: 100 MG
     Route: 058
     Dates: start: 20170606, end: 20170606
  6. MEPOLIZUMAB [Suspect]
     Active Substance: MEPOLIZUMAB
     Dosage: 100 MG
     Route: 058
     Dates: start: 20170704, end: 20170704
  7. MEPOLIZUMAB [Suspect]
     Active Substance: MEPOLIZUMAB
     Dosage: 100 MG
     Route: 058
     Dates: start: 20170801, end: 20170801
  8. MEPOLIZUMAB [Suspect]
     Active Substance: MEPOLIZUMAB
     Dosage: 100 MG
     Route: 058
     Dates: start: 20170829, end: 20170829
  9. MEPOLIZUMAB [Suspect]
     Active Substance: MEPOLIZUMAB
     Dosage: 100 MG
     Route: 058
     Dates: start: 20170926, end: 20170926
  10. MEPOLIZUMAB [Suspect]
     Active Substance: MEPOLIZUMAB
     Dosage: 100 MG
     Route: 058
     Dates: start: 20171017, end: 20171017
  11. MEPOLIZUMAB [Suspect]
     Active Substance: MEPOLIZUMAB
     Dosage: 100 MG
     Route: 058
     Dates: start: 20171121, end: 20171121
  12. MEPOLIZUMAB [Suspect]
     Active Substance: MEPOLIZUMAB
     Dosage: 100 MG
     Route: 058
     Dates: start: 20171219, end: 20171219
  13. MEPOLIZUMAB [Suspect]
     Active Substance: MEPOLIZUMAB
     Dosage: 100 MG
     Route: 058
     Dates: start: 20180213, end: 20180213
  14. MEPOLIZUMAB [Suspect]
     Active Substance: MEPOLIZUMAB
     Dosage: 100 MG
     Route: 058
     Dates: start: 20180320, end: 20180320
  15. MEPOLIZUMAB [Suspect]
     Active Substance: MEPOLIZUMAB
     Dosage: 100 MG
     Route: 058
     Dates: start: 20180417, end: 20180417
  16. MEPOLIZUMAB [Suspect]
     Active Substance: MEPOLIZUMAB
     Dosage: 100 MG
     Route: 058
     Dates: start: 20180515, end: 20180515
  17. MEPOLIZUMAB [Suspect]
     Active Substance: MEPOLIZUMAB
     Dosage: 100 MG
     Route: 058
     Dates: start: 20180612, end: 20180612
  18. MEPOLIZUMAB [Suspect]
     Active Substance: MEPOLIZUMAB
     Dosage: 100 MG
     Route: 058
     Dates: start: 20180710, end: 20180710
  19. MEPOLIZUMAB [Suspect]
     Active Substance: MEPOLIZUMAB
     Dosage: 300 MG
     Route: 058
     Dates: start: 20180807, end: 20180807
  20. MEPOLIZUMAB [Suspect]
     Active Substance: MEPOLIZUMAB
     Dosage: 300 MG
     Route: 058
     Dates: start: 20180904, end: 20180904
  21. MEPOLIZUMAB [Suspect]
     Active Substance: MEPOLIZUMAB
     Dosage: 300 MG
     Route: 058
     Dates: start: 20181002, end: 20181002
  22. MEPOLIZUMAB [Suspect]
     Active Substance: MEPOLIZUMAB
     Dosage: 300 MG
     Route: 058
     Dates: start: 20181106, end: 20181106
  23. MEPOLIZUMAB [Suspect]
     Active Substance: MEPOLIZUMAB
     Dosage: 300 MG
     Route: 058
     Dates: start: 20181204, end: 20181204
  24. MEPOLIZUMAB [Suspect]
     Active Substance: MEPOLIZUMAB
     Dosage: 300 MG
     Route: 058
     Dates: start: 20190108, end: 20190108
  25. MEPOLIZUMAB [Suspect]
     Active Substance: MEPOLIZUMAB
     Dosage: 300 MG
     Route: 058
     Dates: start: 20190212, end: 20190212
  26. MEPOLIZUMAB [Suspect]
     Active Substance: MEPOLIZUMAB
     Dosage: 300 MG
     Route: 058
     Dates: start: 20190312, end: 20190312
  27. MEPOLIZUMAB [Suspect]
     Active Substance: MEPOLIZUMAB
     Dosage: 300 MG
     Route: 058
     Dates: start: 20190409, end: 20190409
  28. MEPOLIZUMAB [Suspect]
     Active Substance: MEPOLIZUMAB
     Dosage: 300 MG
     Route: 058
     Dates: start: 20190514, end: 20190514
  29. MEPOLIZUMAB [Suspect]
     Active Substance: MEPOLIZUMAB
     Dosage: 300 MG
     Route: 058
     Dates: start: 20190611, end: 20190611
  30. MEPOLIZUMAB [Suspect]
     Active Substance: MEPOLIZUMAB
     Dosage: 300 MG
     Route: 058
     Dates: start: 20190709, end: 20190709
  31. MEPOLIZUMAB [Suspect]
     Active Substance: MEPOLIZUMAB
     Dosage: 300 MG
     Route: 058
     Dates: start: 20190806, end: 20190806
  32. MEPOLIZUMAB [Suspect]
     Active Substance: MEPOLIZUMAB
     Dosage: 300 MG
     Route: 058
     Dates: start: 20190917, end: 20190917
  33. MEPOLIZUMAB [Suspect]
     Active Substance: MEPOLIZUMAB
     Dosage: 300 MG
     Route: 058
     Dates: start: 20191015, end: 20191015
  34. MEPOLIZUMAB [Suspect]
     Active Substance: MEPOLIZUMAB
     Dosage: 300 MG
     Route: 058
     Dates: start: 20191119, end: 20191119
  35. MEPOLIZUMAB [Suspect]
     Active Substance: MEPOLIZUMAB
     Dosage: 300 MG
     Route: 058
     Dates: start: 20191217, end: 20191217
  36. MEPOLIZUMAB [Suspect]
     Active Substance: MEPOLIZUMAB
     Dosage: 300 MG
     Route: 058
     Dates: start: 20200121, end: 20200121
  37. MEPOLIZUMAB [Suspect]
     Active Substance: MEPOLIZUMAB
     Dosage: 300 MG
     Route: 058
     Dates: start: 20200218, end: 20200218
  38. MEPOLIZUMAB [Suspect]
     Active Substance: MEPOLIZUMAB
     Dosage: 300 MG
     Route: 058
     Dates: start: 20200317, end: 20200317
  39. MEPOLIZUMAB [Suspect]
     Active Substance: MEPOLIZUMAB
     Dosage: 300 MG
     Route: 058
     Dates: start: 20200414, end: 20200414
  40. MEPOLIZUMAB [Suspect]
     Active Substance: MEPOLIZUMAB
     Dosage: 300 MG
     Route: 058
     Dates: start: 20200512, end: 20200512
  41. PREDNISOLONE [Concomitant]
     Active Substance: PREDNISOLONE
     Indication: Eosinophilic granulomatosis with polyangiitis
     Dosage: 5 MG, QD
     Dates: end: 20181002
  42. PREDNISOLONE [Concomitant]
     Active Substance: PREDNISOLONE
     Indication: Asthma
     Dosage: 4 MG, QD
     Dates: start: 20181003, end: 20181204
  43. PREDNISOLONE [Concomitant]
     Active Substance: PREDNISOLONE
     Dosage: 10 MG, QD
     Dates: start: 20181205, end: 20190108
  44. PREDNISOLONE [Concomitant]
     Active Substance: PREDNISOLONE
     Dosage: 9 MG, QD
     Dates: start: 20190109, end: 20190212
  45. PREDNISOLONE [Concomitant]
     Active Substance: PREDNISOLONE
     Dosage: 8 MG, QD
     Dates: start: 20190213, end: 20190312
  46. PREDNISOLONE [Concomitant]
     Active Substance: PREDNISOLONE
     Dosage: 7 MG, QD
     Dates: start: 20190313, end: 20190917
  47. PREDNISOLONE [Concomitant]
     Active Substance: PREDNISOLONE
     Dosage: 6 MG, QD
     Dates: start: 20190918, end: 20200407
  48. PREDNISOLONE [Concomitant]
     Active Substance: PREDNISOLONE
     Dosage: 26 MG, QD
     Dates: start: 20200408, end: 20200413
  49. PREDNISOLONE [Concomitant]
     Active Substance: PREDNISOLONE
     Dosage: 6 MG, QD
     Dates: start: 20200414
  50. FLUTICASONE FUROATE\VILANTEROL TRIFENATATE [Concomitant]
     Active Substance: FLUTICASONE FUROATE\VILANTEROL TRIFENATATE
     Indication: Eosinophilic granulomatosis with polyangiitis
     Dosage: 200 ?G, QD
     Route: 055
  51. PROGRAF [Concomitant]
     Active Substance: TACROLIMUS
     Indication: Eosinophilic granulomatosis with polyangiitis
     Dosage: 2 MG, QD
  52. CARBOCYSTEINE [Concomitant]
     Active Substance: CARBOCYSTEINE
     Indication: Eosinophilic granulomatosis with polyangiitis
  53. AMBROXOL HYDROCHLORIDE [Concomitant]
     Active Substance: AMBROXOL HYDROCHLORIDE
     Indication: Eosinophilic granulomatosis with polyangiitis
  54. SINGULAIR [Concomitant]
     Active Substance: MONTELUKAST SODIUM
     Indication: Eosinophilic granulomatosis with polyangiitis
  55. SPIRIVA RESPIMAT [Concomitant]
     Active Substance: TIOTROPIUM BROMIDE
     Indication: Eosinophilic granulomatosis with polyangiitis
  56. PROCATEROL HYDROCHLORIDE [Concomitant]
     Active Substance: PROCATEROL HYDROCHLORIDE
     Indication: Eosinophilic granulomatosis with polyangiitis
  57. ONEALFA [Concomitant]
     Active Substance: ALFACALCIDOL
  58. REBAMIPIDE [Concomitant]
     Active Substance: REBAMIPIDE
  59. METHYLCOBALAMIN [Concomitant]
     Active Substance: METHYLCOBALAMIN
  60. MINODRONIC ACID [Concomitant]
     Active Substance: MINODRONIC ACID
  61. RABEPRAZOLE SODIUM [Concomitant]
     Active Substance: RABEPRAZOLE SODIUM
  62. LIPITOR [Concomitant]
     Active Substance: ATORVASTATIN CALCIUM
  63. BISOPROLOL FUMARATE [Concomitant]
     Active Substance: BISOPROLOL FUMARATE
     Indication: Eosinophilic granulomatosis with polyangiitis
  64. ATOLANT [Concomitant]
  65. TANATRIL + [Concomitant]
     Indication: Eosinophilic granulomatosis with polyangiitis
  66. POLARAMINE [Concomitant]
     Active Substance: DEXCHLORPHENIRAMINE MALEATE
     Indication: Rhinitis allergic
  67. EPHEDRA SINICA STEM\HERBALS [Concomitant]
     Active Substance: EPHEDRA SINICA STEM\HERBALS
     Indication: Rhinitis allergic
  68. MIYA-BM [Concomitant]
     Active Substance: CLOSTRIDIUM BUTYRICUM SPORES STRAIN M-55
     Indication: Eosinophilic granulomatosis with polyangiitis

REACTIONS (5)
  - Bronchitis [Recovering/Resolving]
  - Gastric ulcer [Recovering/Resolving]
  - Asthma [Recovering/Resolving]
  - Migraine [Recovering/Resolving]
  - Inappropriate schedule of product administration [Unknown]

NARRATIVE: CASE EVENT DATE: 20181204
